FAERS Safety Report 23046013 (Version 1)
Quarter: 2023Q4

REPORT INFORMATION
  Report Type: Spontaneous
  Country: AT (occurrence: AT)
  Receive Date: 20231009
  Receipt Date: 20231009
  Transmission Date: 20240109
  Serious: Yes (Other)
  Sender: FDA-Public Use
  Company Number: AT-AMGEN-AUTSP2023175914

PATIENT

DRUGS (1)
  1. KYPROLIS [Suspect]
     Active Substance: CARFILZOMIB
     Indication: Plasma cell myeloma
     Dosage: UNK
     Route: 065

REACTIONS (24)
  - Polyneuropathy [Unknown]
  - Plasma cell myeloma [Unknown]
  - Adverse event [Unknown]
  - Sleep disorder [Unknown]
  - Emotional disorder [Unknown]
  - Oedema [Unknown]
  - Weight decreased [Unknown]
  - Eye irritation [Unknown]
  - Dysgeusia [Unknown]
  - Eye pain [Unknown]
  - Muscle spasms [Unknown]
  - Vision blurred [Unknown]
  - Rash [Unknown]
  - Dyspnoea [Unknown]
  - Pain [Unknown]
  - Fatigue [Unknown]
  - Back pain [Unknown]
  - Diarrhoea [Unknown]
  - Nausea [Unknown]
  - Vomiting [Unknown]
  - Constipation [Unknown]
  - Cough [Unknown]
  - Pyrexia [Unknown]
  - Infusion related reaction [Unknown]
